FAERS Safety Report 9486973 (Version 1)
Quarter: 2013Q3

REPORT INFORMATION
  Report Type: Spontaneous
  Country: US (occurrence: US)
  Receive Date: 20130829
  Receipt Date: 20130829
  Transmission Date: 20140515
  Serious: Yes (Hospitalization)
  Sender: FDA-Public Use
  Company Number: US-GLAXOSMITHKLINE-A1038267A

PATIENT
  Sex: Female

DRUGS (3)
  1. PAXIL CR [Suspect]
     Indication: ANXIETY DISORDER
     Dosage: 25MG TWICE PER DAY
     Route: 048
     Dates: start: 20100629
  2. PAROXETINE CR [Suspect]
     Indication: ANXIETY DISORDER
     Dosage: 25MG TWICE PER DAY
     Route: 048
     Dates: start: 2000
  3. NO CONCURRENT MEDICATION [Concomitant]

REACTIONS (12)
  - Blood iron decreased [Not Recovered/Not Resolved]
  - Drug withdrawal syndrome [Unknown]
  - Weight increased [Unknown]
  - Malaise [Unknown]
  - Feeling abnormal [Unknown]
  - Asthenia [Unknown]
  - Decreased interest [Unknown]
  - Panic reaction [Unknown]
  - Visual impairment [Unknown]
  - Nausea [Unknown]
  - Depression [Unknown]
  - Fatigue [Unknown]
